FAERS Safety Report 10368746 (Version 2)
Quarter: 2014Q3

REPORT INFORMATION
  Report Type: Spontaneous
  Country: JP (occurrence: JP)
  Receive Date: 20140807
  Receipt Date: 20140807
  Transmission Date: 20150326
  Serious: Yes (Death, Other)
  Sender: FDA-Public Use
  Company Number: JP-MALLINCKRODT-T201401573

PATIENT
  Age: 68 Year
  Sex: Female
  Weight: 40.6 kg

DRUGS (23)
  1. METHADONE [Suspect]
     Active Substance: METHADONE HYDROCHLORIDE
     Dosage: 30 MG, (90 MG DAILY DOSE
     Route: 048
     Dates: start: 20140318, end: 20140419
  2. METHADONE [Suspect]
     Active Substance: METHADONE HYDROCHLORIDE
     Dosage: 20 MG, (40 MG DAILY DOSE)
     Route: 048
     Dates: start: 20140422, end: 20140427
  3. FENTANYL. [Concomitant]
     Active Substance: FENTANYL
     Dosage: 4.2 MG
     Route: 062
     Dates: end: 20140123
  4. METHADONE [Suspect]
     Active Substance: METHADONE HYDROCHLORIDE
     Dosage: 15 MG, (45 MG DAILY DOSE)
     Route: 048
     Dates: start: 20140204, end: 20140224
  5. MAGMITT [Concomitant]
     Active Substance: MAGNESIUM OXIDE
     Dosage: 990 MG, UNK
     Route: 048
     Dates: start: 20140205, end: 20140619
  6. METHADONE [Suspect]
     Active Substance: METHADONE HYDROCHLORIDE
     Dosage: 10 MG, (20 MG DAILY DOSE)
     Route: 048
     Dates: start: 20140121, end: 20140127
  7. METHADONE [Suspect]
     Active Substance: METHADONE HYDROCHLORIDE
     Dosage: 20 MG, (60 MG DAILY DOSE)
     Route: 048
     Dates: start: 20140428, end: 20140525
  8. LINOLOSAL [Concomitant]
     Dosage: 1 MG, UNK
     Route: 051
     Dates: end: 20140619
  9. VERAPAMIL HCL [Concomitant]
     Active Substance: VERAPAMIL HYDROCHLORIDE
     Dosage: 48 MG, UNK
     Route: 051
     Dates: start: 20140323, end: 20140502
  10. LANDSEN [Concomitant]
     Active Substance: CLONAZEPAM
     Dosage: 0.5 MG, UNK
     Route: 048
     Dates: start: 20140213, end: 20140619
  11. METHADONE [Suspect]
     Active Substance: METHADONE HYDROCHLORIDE
     Indication: CANCER PAIN
     Dosage: 5 MG, (15 MG DAILY DOSE)
     Route: 048
     Dates: start: 20140114, end: 20140120
  12. AMOXAN [Concomitant]
     Active Substance: AMOXAPINE
     Dosage: 25 MG, UNK
     Route: 048
     Dates: start: 20140117, end: 20140619
  13. PYRETHIA [Concomitant]
     Active Substance: PROMETHAZINE HYDROCHLORIDE
     Dosage: 25 MG, UNK
     Route: 048
     Dates: start: 20140123, end: 20140126
  14. SODIUM PICOSULFATE HYDRATE [Concomitant]
     Dosage: 5 GTT, UNK
     Route: 048
     Dates: start: 20140218, end: 20140618
  15. METHADONE [Suspect]
     Active Substance: METHADONE HYDROCHLORIDE
     Dosage: 10 MG, (30 MG DAILY DOSE)
     Route: 048
     Dates: start: 20140128, end: 20140203
  16. METHADONE [Suspect]
     Active Substance: METHADONE HYDROCHLORIDE
     Dosage: 20 MG (60 MG DAILY DOSE)
     Route: 048
     Dates: start: 20140225, end: 20140303
  17. METHADONE [Suspect]
     Active Substance: METHADONE HYDROCHLORIDE
     Dosage: 25 MG, (75 MG DAILY DOSE)
     Route: 048
     Dates: start: 20140304, end: 20140317
  18. METHADONE [Suspect]
     Active Substance: METHADONE HYDROCHLORIDE
     Dosage: 30 MG, (60 MG DAILY DOSE)
     Route: 048
     Dates: start: 20140420, end: 20140421
  19. GABAPEN [Concomitant]
     Active Substance: GABAPENTIN
     Dosage: 900 MG, UNK
     Route: 048
     Dates: end: 20140323
  20. METHADONE [Suspect]
     Active Substance: METHADONE HYDROCHLORIDE
     Dosage: 25 MG, (75 MG ORAL DOSE)
     Route: 048
     Dates: start: 20140526, end: 20140619
  21. FENTANYL. [Concomitant]
     Active Substance: FENTANYL
     Dosage: 0.1 MG, PRN
     Route: 051
     Dates: start: 20140113, end: 20140120
  22. OXYFAST [Concomitant]
     Active Substance: OXYCODONE
     Dosage: 10 MG, PRN
     Route: 058
  23. OXYFAST [Concomitant]
     Active Substance: OXYCODONE
     Dosage: 36-96 MG, UNK
     Route: 058
     Dates: start: 20140114, end: 20140323

REACTIONS (9)
  - Rectal cancer recurrent [Fatal]
  - Somnolence [Not Recovered/Not Resolved]
  - Blood pressure decreased [Fatal]
  - Vomiting [Recovering/Resolving]
  - Bacteraemia [Recovered/Resolved]
  - Rhinorrhoea [Recovering/Resolving]
  - Altered state of consciousness [Fatal]
  - Myoclonus [Not Recovered/Not Resolved]
  - Hyperhidrosis [Recovering/Resolving]

NARRATIVE: CASE EVENT DATE: 20140115
